FAERS Safety Report 9270120 (Version 4)
Quarter: 2013Q3

REPORT INFORMATION
  Report Type: Report from Study
  Country: FR (occurrence: FR)
  Receive Date: 20130503
  Receipt Date: 20130910
  Transmission Date: 20140515
  Serious: Yes (Life-Threatening, Hospitalization)
  Sender: FDA-Public Use
  Company Number: FR-GLAXOSMITHKLINE-B0889080A

PATIENT
  Age: 64 Year
  Sex: Male
  Weight: 60 kg

DRUGS (6)
  1. OFATUMUMAB [Suspect]
     Indication: CHRONIC LYMPHOCYTIC LEUKAEMIA
     Dosage: 1000MG PER DAY
     Route: 042
     Dates: start: 20130226
  2. METHYLPREDNISOLONE [Suspect]
     Indication: CHRONIC LYMPHOCYTIC LEUKAEMIA
     Dosage: 1700MG PER DAY
     Route: 042
     Dates: start: 20130226
  3. BENDAMUSTINE [Suspect]
     Indication: CHRONIC LYMPHOCYTIC LEUKAEMIA
     Dosage: 120MG PER DAY
     Dates: start: 20130227
  4. BACTRIM [Concomitant]
     Route: 048
     Dates: start: 20130219
  5. ZELITREX [Concomitant]
     Route: 048
     Dates: start: 20130219
  6. TEMESTA [Concomitant]
     Route: 048

REACTIONS (1)
  - Progressive multifocal leukoencephalopathy [Fatal]
